FAERS Safety Report 9036410 (Version 1)
Quarter: 2013Q1

REPORT INFORMATION
  Report Type: Spontaneous
  Country: US (occurrence: None)
  Receive Date: 20130117
  Receipt Date: 20130117
  Transmission Date: 20140127
  Serious: Yes (Hospitalization)
  Sender: FDA-Public Use
  Company Number: None

PATIENT
  Age: 72 Year
  Sex: Male
  Weight: 89.2 kg

DRUGS (2)
  1. ERLOTINB [Suspect]
     Indication: NON-SMALL CELL LUNG CANCER
     Route: 048
     Dates: start: 20121130, end: 20121210
  2. BEVACIZUMAB [Suspect]
     Indication: NON-SMALL CELL LUNG CANCER
     Route: 042
     Dates: start: 20121107

REACTIONS (7)
  - Diarrhoea [None]
  - Rash [None]
  - Dehydration [None]
  - Hypoxia [None]
  - Hyponatraemia [None]
  - Bronchitis [None]
  - Urinary retention [None]
